FAERS Safety Report 4842954-5 (Version None)
Quarter: 2005Q4

REPORT INFORMATION
  Report Type: 
  Country: None (occurrence: None)
  Receive Date: 20051201
  Receipt Date: 20051121
  Transmission Date: 20060501
  Serious: Yes (Other)
  Sender: FDA-Public Use
  Company Number: TW-SANOFI-SYNTHELABO-A01200508245

PATIENT
  Sex: Male

DRUGS (3)
  1. ELOXATIN [Suspect]
     Indication: COLORECTAL CANCER
     Route: 041
     Dates: start: 20051117, end: 20051117
  2. NOVAMIN [Suspect]
     Indication: VOMITING
     Dosage: DOSE UNKNOWN
  3. FLUOROURACIL [Concomitant]
     Indication: COLORECTAL CANCER
     Dosage: DOSE UNKNOWN
     Route: 041
     Dates: start: 20051117, end: 20051118

REACTIONS (3)
  - INFECTION [None]
  - LOSS OF CONSCIOUSNESS [None]
  - URINARY RETENTION [None]
